FAERS Safety Report 11323103 (Version 6)
Quarter: 2017Q4

REPORT INFORMATION
  Report Type: Spontaneous
  Country: DE (occurrence: DE)
  Receive Date: 20150730
  Receipt Date: 20171025
  Transmission Date: 20180320
  Serious: Yes (Death, Hospitalization, Other)
  Sender: FDA-Public Use
  Company Number: DE-AMGEN-DEUSP2015075591

PATIENT
  Age: 70 Year
  Sex: Female
  Weight: 46.5 kg

DRUGS (18)
  1. KALINOR [Concomitant]
     Active Substance: POTASSIUM CITRATE
     Dosage: 1.56 G, UNK
     Dates: start: 20140324, end: 20140329
  2. OLIMEL [Concomitant]
     Active Substance: AMINO ACIDS\DEXTROSE\SOYBEAN OIL
     Dosage: 1000 ML (4.4%), QD
     Dates: start: 20140620, end: 20140728
  3. ADDEL N [Concomitant]
     Active Substance: UNSPECIFIED INGREDIENT
     Dosage: 1000 ML, UNK
     Dates: start: 20140729
  4. OMEPRAZOLE. [Concomitant]
     Active Substance: OMEPRAZOLE
     Dosage: 40 MG, QD
  5. CERNEVIT [Concomitant]
     Active Substance: VITAMINS
     Dosage: UNK
  6. NACL [Concomitant]
     Active Substance: SODIUM CHLORIDE
     Dosage: 500 ML, UNK
     Dates: start: 20140321, end: 20140321
  7. XGEVA [Suspect]
     Active Substance: DENOSUMAB
     Indication: METASTASES TO BONE
     Dosage: 120 MG, Q4WK
     Route: 058
     Dates: start: 20140228, end: 20140901
  8. CLEXANE [Concomitant]
     Active Substance: ENOXAPARIN SODIUM
     Indication: PROPHYLAXIS
     Dosage: 40 MG, UNK
     Dates: start: 20140320, end: 20140327
  9. DULCOLAX NOS [Concomitant]
     Active Substance: BISACODYL OR DOCUSATE SODIUM
     Dosage: UNK
     Dates: start: 20140519, end: 20140519
  10. IBUPROFEN. [Concomitant]
     Active Substance: IBUPROFEN
     Dosage: UNK
     Dates: end: 20140928
  11. SUPRADYN [Concomitant]
     Active Substance: ASCORBIC ACID\MINERALS\VITAMINS
     Dosage: UNK
     Dates: start: 20140324, end: 20140620
  12. GRANOCYTE [Concomitant]
     Active Substance: LENOGRASTIM
     Dosage: 34 MG, UNK
     Dates: start: 20140322, end: 20140322
  13. VINORELBINE [Suspect]
     Active Substance: VINORELBINE\VINORELBINE TARTRATE
     Dosage: 29 MG, UNK
     Route: 048
  14. NORSPAN [Concomitant]
     Active Substance: BUPRENORPHINE
     Dosage: 5 MUG, QWK
     Dates: start: 20140218, end: 20141001
  15. TARGIN [Concomitant]
     Active Substance: NALOXONE HYDROCHLORIDE\OXYCODONE HYDROCHLORIDE
     Dosage: UNK
     Dates: start: 20140219, end: 20140527
  16. GRANISETRON [Concomitant]
     Active Substance: GRANISETRON
     Dosage: 1 MG, UNK
     Dates: start: 20140519, end: 20140915
  17. VINORELBINE [Suspect]
     Active Substance: VINORELBINE\VINORELBINE TARTRATE
     Indication: PRODUCT USED FOR UNKNOWN INDICATION
     Dosage: 70 MG, UNK
     Route: 048
     Dates: start: 20140307, end: 20140915
  18. STEROFUNDIN [Concomitant]
     Active Substance: CALCIUM CHLORIDE\MAGNESIUM CHLORIDE\POTASSIUM CHLORIDE\SODIUM ACETATE\SODIUM CHLORIDE
     Dosage: 500 ML, UNK
     Route: 042
     Dates: start: 20140320, end: 20140321

REACTIONS (29)
  - Osteonecrosis of jaw [Not Recovered/Not Resolved]
  - Aspartate aminotransferase increased [Not Recovered/Not Resolved]
  - Alanine aminotransferase increased [Recovered/Resolved]
  - Hypophagia [Unknown]
  - Pain in extremity [Unknown]
  - Hypocalcaemia [Recovered/Resolved]
  - Dehydration [Unknown]
  - Decreased appetite [Recovering/Resolving]
  - Lymphocyte count decreased [Not Recovered/Not Resolved]
  - Gamma-glutamyltransferase increased [Not Recovered/Not Resolved]
  - Fatigue [Not Recovered/Not Resolved]
  - Urinary incontinence [Not Recovered/Not Resolved]
  - Dyspnoea [Not Recovered/Not Resolved]
  - Periodontitis [Unknown]
  - Nausea [Unknown]
  - Diarrhoea [Unknown]
  - Lung infection [Not Recovered/Not Resolved]
  - Respiratory arrest [Fatal]
  - Neutropenia [Unknown]
  - Constipation [Recovered/Resolved]
  - Pneumonia [Fatal]
  - Weight decreased [Unknown]
  - Blood urea increased [Not Recovered/Not Resolved]
  - Blood lactate dehydrogenase increased [Unknown]
  - Hypoalbuminaemia [Not Recovered/Not Resolved]
  - Monocyte count increased [Not Recovered/Not Resolved]
  - Abdominal pain [Not Recovered/Not Resolved]
  - Pyrexia [Unknown]
  - Vertigo positional [Unknown]

NARRATIVE: CASE EVENT DATE: 2014
